FAERS Safety Report 9553779 (Version 1)
Quarter: 2013Q3

REPORT INFORMATION
  Report Type: Spontaneous
  Country: DE (occurrence: None)
  Receive Date: 20130923
  Receipt Date: 20130923
  Transmission Date: 20140515
  Serious: Yes (Other)
  Sender: FDA-Public Use
  Company Number: 1309-1165

PATIENT
  Age: 72 Year
  Sex: Female

DRUGS (1)
  1. EYLEA [Suspect]
     Indication: AGE-RELATED MACULAR DEGENERATION
     Dates: start: 201301, end: 201307

REACTIONS (8)
  - Visual impairment [None]
  - Vision blurred [None]
  - Headache [None]
  - Haematochezia [None]
  - Vomiting [None]
  - Tremor [None]
  - Pain [None]
  - Malaise [None]
